FAERS Safety Report 22849630 (Version 9)
Quarter: 2024Q4

REPORT INFORMATION
  Report Type: Spontaneous
  Country: US (occurrence: US)
  Receive Date: 20230822
  Receipt Date: 20241217
  Transmission Date: 20250114
  Serious: No
  Sender: BRISTOL-MYERS SQUIBB COMPANY
  Company Number: US-BRISTOL-MYERS SQUIBB COMPANY-2023-116985

PATIENT
  Age: 80 Year
  Sex: Female
  Weight: 65.77 kg

DRUGS (4)
  1. REVLIMID [Suspect]
     Active Substance: LENALIDOMIDE
     Indication: Plasma cell myeloma
     Route: 048
  2. REVLIMID [Suspect]
     Active Substance: LENALIDOMIDE
     Dosage: FREQUENCY:  2WKSON,2WKSOFF
     Route: 048
  3. REVLIMID [Suspect]
     Active Substance: LENALIDOMIDE
     Route: 048
  4. REVLIMID [Suspect]
     Active Substance: LENALIDOMIDE
     Route: 048

REACTIONS (13)
  - Constipation [Not Recovered/Not Resolved]
  - Nausea [Recovered/Resolved]
  - Off label use [Unknown]
  - Oral pain [Unknown]
  - Taste disorder [Recovering/Resolving]
  - Hunger [Recovered/Resolved]
  - Fatigue [Recovering/Resolving]
  - Insomnia [Recovered/Resolved]
  - Lymphadenopathy [Recovered/Resolved]
  - Eye pain [Unknown]
  - Dry eye [Unknown]
  - Diarrhoea [Unknown]
  - Dry mouth [Unknown]

NARRATIVE: CASE EVENT DATE: 20230818
